FAERS Safety Report 20563390 (Version 8)
Quarter: 2023Q4

REPORT INFORMATION
  Report Type: Spontaneous
  Country: PT (occurrence: PT)
  Receive Date: 20220308
  Receipt Date: 20231208
  Transmission Date: 20240110
  Serious: Yes (Hospitalization, Other)
  Sender: FDA-Public Use
  Company Number: PT-002147023-NVSC2022PT037849

PATIENT
  Age: 78 Year
  Sex: Male

DRUGS (4)
  1. MIRTAZAPINE [Suspect]
     Active Substance: MIRTAZAPINE
     Indication: Product used for unknown indication
     Dosage: 30 MILLIGRAM, ONCE A DAY
     Route: 065
  2. OLANZAPINE [Suspect]
     Active Substance: OLANZAPINE
     Indication: Product used for unknown indication
     Dosage: 5 MILLIGRAM, ONCE A DAY
     Route: 065
  3. SERTRALINE HYDROCHLORIDE [Interacting]
     Active Substance: SERTRALINE HYDROCHLORIDE
     Indication: Product used for unknown indication
     Dosage: 50 MILLIGRAM, ONCE A DAY
     Route: 065
  4. QUETIAPINE [Interacting]
     Active Substance: QUETIAPINE
     Indication: Product used for unknown indication
     Dosage: 50 MILLIGRAM, ONCE A DAY
     Route: 065

REACTIONS (12)
  - Serotonin syndrome [Recovered/Resolved]
  - Psychomotor hyperactivity [Unknown]
  - Tachypnoea [Unknown]
  - Hallucination, visual [Unknown]
  - Abnormal behaviour [Unknown]
  - Sinus tachycardia [Unknown]
  - Hypertension [Unknown]
  - Hyperreflexia [Unknown]
  - Drug interaction [Recovering/Resolving]
  - Disorientation [Unknown]
  - Restlessness [Unknown]
  - Speech disorder [Unknown]
